FAERS Safety Report 17566877 (Version 1)
Quarter: 2020Q1

REPORT INFORMATION
  Report Type: Spontaneous
  Country: US (occurrence: US)
  Receive Date: 20200320
  Receipt Date: 20200320
  Transmission Date: 20200409
  Serious: No
  Sender: FDA-Public Use
  Company Number: US-TEVA-2020-US-1195234

PATIENT
  Sex: Male

DRUGS (5)
  1. HYDROCODONE/ APAP [Concomitant]
     Active Substance: ACETAMINOPHEN\HYDROCODONE
  2. AUSTEDO [Suspect]
     Active Substance: DEUTETRABENAZINE
     Indication: TARDIVE DYSKINESIA
     Dosage: 24 MILLIGRAM DAILY;
     Route: 065
     Dates: start: 201801
  3. KEPPRA [Concomitant]
     Active Substance: LEVETIRACETAM
  4. IBU [Concomitant]
     Active Substance: IBUPROFEN
  5. TRULICITY [Concomitant]
     Active Substance: DULAGLUTIDE

REACTIONS (3)
  - Musculoskeletal stiffness [Unknown]
  - Motor dysfunction [Unknown]
  - Pain [Unknown]
